FAERS Safety Report 16039791 (Version 1)
Quarter: 2019Q1

REPORT INFORMATION
  Report Type: Spontaneous
  Country: US (occurrence: US)
  Receive Date: 20190306
  Receipt Date: 20190306
  Transmission Date: 20190418
  Serious: Yes (Other)
  Sender: FDA-Public Use
  Company Number: US-APOTEX-2019AP008760

PATIENT
  Age: 56 Year
  Sex: Female

DRUGS (3)
  1. ZOLEDRONIC ACID INJECTION [Suspect]
     Active Substance: ZOLEDRONIC ACID
     Indication: OSTEOPOROSIS
     Dosage: UNK
     Route: 042
  2. CYCLOSPORINE. [Concomitant]
     Active Substance: CYCLOSPORINE
     Indication: RHEUMATIC DISORDER
     Dosage: 75 MG, QD
     Route: 065
  3. BELIMUMAB [Concomitant]
     Active Substance: BELIMUMAB
     Indication: RHEUMATIC DISORDER
     Dosage: 120 MG PER 1.5 ML (MONTHLY )
     Route: 065

REACTIONS (2)
  - Parophthalmia [Recovered/Resolved]
  - Vitreous detachment [Recovered/Resolved]
